FAERS Safety Report 15068875 (Version 2)
Quarter: 2018Q2

REPORT INFORMATION
  Report Type: Spontaneous
  Country: US (occurrence: US)
  Receive Date: 20180626
  Receipt Date: 20180629
  Transmission Date: 20180711
  Serious: Yes (Other)
  Sender: FDA-Public Use
  Company Number: US-PFIZER INC-2018257825

PATIENT
  Age: 68 Year
  Sex: Female
  Weight: 92.97 kg

DRUGS (1)
  1. VISTARIL [Suspect]
     Active Substance: HYDROXYZINE PAMOATE
     Indication: ECZEMA
     Dosage: 50 MG
     Route: 048

REACTIONS (3)
  - Cerebrovascular accident [Unknown]
  - Visual impairment [Unknown]
  - Arteriosclerosis [Unknown]

NARRATIVE: CASE EVENT DATE: 2017
